FAERS Safety Report 6015137-3 (Version None)
Quarter: 2008Q4

REPORT INFORMATION
  Report Type: 
  Country: None (occurrence: None)
  Receive Date: 20081218
  Receipt Date: 20081205
  Transmission Date: 20090506
  Serious: Yes (Hospitalization)
  Sender: FDA-Public Use
  Company Number: POMP-1000339

PATIENT
  Age: 16 Month
  Sex: Female
  Weight: 8.1 kg

DRUGS (7)
  1. MYOZYME [Suspect]
     Indication: GLYCOGEN STORAGE DISEASE TYPE II
     Dosage: 40 MG/KG, Q2W, INTRAVENOUS; 20 MG/KG, Q2W, INTRAVENOUS
     Route: 042
     Dates: start: 20080701, end: 20081001
  2. MYOZYME [Suspect]
     Indication: GLYCOGEN STORAGE DISEASE TYPE II
     Dosage: 40 MG/KG, Q2W, INTRAVENOUS; 20 MG/KG, Q2W, INTRAVENOUS
     Route: 042
     Dates: start: 20081031
  3. PULMICORT [Concomitant]
  4. XOPENEX [Concomitant]
  5. LASIX [Concomitant]
  6. FLOVENT [Concomitant]
  7. RANITIDINE [Concomitant]

REACTIONS (6)
  - CELLULITIS [None]
  - DEHYDRATION [None]
  - MEDICAL DEVICE COMPLICATION [None]
  - PNEUMONIA [None]
  - RESPIRATORY FAILURE [None]
  - TACHYPNOEA [None]
